FAERS Safety Report 18775564 (Version 1)
Quarter: 2021Q1

REPORT INFORMATION
  Report Type: Spontaneous
  Country: US (occurrence: US)
  Receive Date: 20210122
  Receipt Date: 20210122
  Transmission Date: 20210419
  Serious: Yes (Hospitalization, Other)
  Sender: FDA-Public Use
  Company Number: US-GLAXOSMITHKLINE-US2021GSK007175

PATIENT
  Age: 64 Year
  Sex: Female

DRUGS (3)
  1. PREDNISONE. [Concomitant]
     Active Substance: PREDNISONE
     Indication: STEROID THERAPY
     Dosage: 20 MG, QD
  2. ATOVAQUONE. [Suspect]
     Active Substance: ATOVAQUONE
     Indication: ANTIFUNGAL PROPHYLAXIS
     Dosage: 1.5 G, QD
  3. APIXABAN [Concomitant]
     Active Substance: APIXABAN
     Indication: THROMBOSIS PROPHYLAXIS
     Dosage: UNK

REACTIONS (20)
  - Hepatocellular injury [Recovered/Resolved]
  - Ascites [Recovered/Resolved]
  - Macrophage activation [Recovered/Resolved]
  - Blood thyroid stimulating hormone increased [Recovered/Resolved]
  - Acute phase reaction [Recovered/Resolved]
  - Hepatic function abnormal [Recovered/Resolved]
  - Hepatitis acute [Recovered/Resolved]
  - Blood bilirubin increased [Recovered/Resolved]
  - Blood alkaline phosphatase increased [Recovered/Resolved]
  - Drug-induced liver injury [Recovered/Resolved]
  - Right ventricular dysfunction [Recovered/Resolved]
  - White blood cell count increased [Recovered/Resolved]
  - Serum ferritin increased [Recovered/Resolved]
  - Deep vein thrombosis [Recovered/Resolved]
  - Blood lactate dehydrogenase increased [Recovered/Resolved]
  - Cholelithiasis [Recovered/Resolved]
  - Peripheral swelling [Recovered/Resolved]
  - Biliary obstruction [Recovered/Resolved]
  - Pulmonary embolism [Recovered/Resolved]
  - Ocular icterus [Recovered/Resolved]
